FAERS Safety Report 19778827 (Version 1)
Quarter: 2021Q3

REPORT INFORMATION
  Report Type: Spontaneous
  Country: NO (occurrence: NO)
  Receive Date: 20210902
  Receipt Date: 20210902
  Transmission Date: 20211014
  Serious: Yes (Hospitalization, Other)
  Sender: FDA-Public Use
  Company Number: NO-BAYER-2021-204093

PATIENT

DRUGS (1)
  1. XOFIGO [Suspect]
     Active Substance: RADIUM RA-223 DICHLORIDE
     Dosage: UNK
     Dates: start: 20210819, end: 20210819

REACTIONS (12)
  - Vomiting [None]
  - General physical health deterioration [None]
  - Illness [None]
  - Malaise [None]
  - Nausea [None]
  - Diarrhoea [None]
  - Blood alkaline phosphatase increased [None]
  - Prostatic specific antigen increased [None]
  - Drug tolerance [None]
  - Disease progression [None]
  - Blood lactate dehydrogenase increased [None]
  - Tumour associated fever [None]
